FAERS Safety Report 17117733 (Version 1)
Quarter: 2019Q4

REPORT INFORMATION
  Report Type: Spontaneous
  Country: FR (occurrence: FR)
  Receive Date: 20191205
  Receipt Date: 20191205
  Transmission Date: 20200122
  Serious: Yes (Hospitalization)
  Sender: FDA-Public Use
  Company Number: FR-MYLANLABS-2019M1119277

PATIENT
  Age: 14 Year
  Sex: Female
  Weight: 57 kg

DRUGS (5)
  1. CYTARABINE ACCORD [Suspect]
     Active Substance: CYTARABINE
     Indication: ACUTE MYELOID LEUKAEMIA
     Dosage: 330 MILLIGRAM, QD
     Route: 041
     Dates: start: 20190614, end: 20190620
  2. CYTARABINE HOSPIRA [Suspect]
     Active Substance: CYTARABINE
     Indication: ACUTE MYELOID LEUKAEMIA
     Dosage: 30 MILLIGRAM, TOTAL
     Route: 037
     Dates: start: 20190617, end: 20190620
  3. METHOTREXATE MYLAN 50 MG/2 ML, SOLUTION FOR INJECTION [Suspect]
     Active Substance: METHOTREXATE SODIUM
     Indication: ACUTE MYELOID LEUKAEMIA
     Dosage: 15 MILLIGRAM, TOTAL (STRENGTH: 50 MG/2 ML)
     Route: 037
     Dates: start: 20190617, end: 20190620
  4. DEPO-MEDROL [Suspect]
     Active Substance: METHYLPREDNISOLONE ACETATE
     Indication: ACUTE MYELOID LEUKAEMIA
     Dosage: 20 MILLIGRAM, TOTAL
     Route: 037
     Dates: start: 20190617, end: 20190620
  5. MITOXANTRONE [Suspect]
     Active Substance: MITOXANTRONE HYDROCHLORIDE
     Indication: ACUTE MYELOID LEUKAEMIA
     Dosage: 19.8 MILLIGRAM, QD
     Route: 041
     Dates: start: 20190614, end: 20190618

REACTIONS (1)
  - Encephalopathy [Recovered/Resolved]

NARRATIVE: CASE EVENT DATE: 20190630
